FAERS Safety Report 5038775-3 (Version None)
Quarter: 2006Q2

REPORT INFORMATION
  Report Type: 
  Country: None (occurrence: None)
  Receive Date: 20060627
  Receipt Date: 20060627
  Transmission Date: 20061013
  Serious: No
  Sender: FDA-Public Use
  Company Number: None

PATIENT
  Age: 81 Year
  Sex: Male
  Weight: 77.1115 kg

DRUGS (13)
  1. WARFARIN SODIUM [Suspect]
     Indication: CEREBROVASCULAR ACCIDENT
     Dosage: 5 MG DAILY PO
     Route: 048
     Dates: start: 20060604, end: 20060617
  2. ENOXAPARIN SODIUM [Suspect]
     Indication: PROPHYLAXIS
     Dosage: 80 MG BID SQ
     Route: 058
     Dates: start: 20060604, end: 20060612
  3. CHLORDIAZEPOXIDE [Concomitant]
  4. CYANOCOBALAMIN [Concomitant]
  5. DM 10/GUAFENESN [Concomitant]
  6. DONEPEZIL HCL [Concomitant]
  7. ENOXAPARIN SODIUM [Concomitant]
  8. WARFARIN SODIUM [Concomitant]
  9. FUROSEMIDE [Concomitant]
  10. NAPROXEN [Concomitant]
  11. OMEPRAZOLE [Concomitant]
  12. PAROXETINE HCL [Concomitant]
  13. POTASSIUM CHLORIDE [Concomitant]

REACTIONS (8)
  - APHASIA [None]
  - ASTHENIA [None]
  - CONTUSION [None]
  - FALL [None]
  - HYPOAESTHESIA [None]
  - LIVING IN RESIDENTIAL INSTITUTION [None]
  - OEDEMA PERIPHERAL [None]
  - PAIN IN EXTREMITY [None]
